FAERS Safety Report 8417262 (Version 2)
Quarter: 2013Q1

REPORT INFORMATION
  Report Type: Spontaneous
  Country: BR (occurrence: BR)
  Receive Date: 20120220
  Receipt Date: 20130218
  Transmission Date: 20140127
  Serious: Yes (Hospitalization)
  Sender: FDA-Public Use
  Company Number: BR-ASTRAZENECA-2012SE08982

PATIENT
  Age: 51 Year
  Sex: Female
  Weight: 63 kg

DRUGS (1)
  1. ARIMIDEX [Suspect]
     Indication: BREAST CANCER
     Route: 048
     Dates: start: 200810

REACTIONS (4)
  - Thyroid neoplasm [Recovered/Resolved]
  - Arthritis [Not Recovered/Not Resolved]
  - Joint stiffness [Not Recovered/Not Resolved]
  - Arthralgia [Not Recovered/Not Resolved]
